FAERS Safety Report 5275566-2 (Version None)
Quarter: 2007Q1

REPORT INFORMATION
  Report Type: 
  Country: None (occurrence: None)
  Receive Date: 20061213
  Receipt Date: 20060421
  Transmission Date: 20070707
  Serious: No
  Sender: FDA-Public Use
  Company Number: 2006UW07146

PATIENT
  Age: 15 Year
  Sex: Male
  Weight: 81.646 kg

DRUGS (6)
  1. SEROQUEL [Suspect]
     Indication: BIPOLAR DISORDER
     Dosage: 50 MG PRN
  2. SEROQUEL [Suspect]
     Indication: SLEEP DISORDER
     Dosage: 50 MG PRN
  3. SEROQUEL [Suspect]
     Indication: BIPOLAR DISORDER
     Dosage: 50 MG HS PO
     Route: 048
  4. SEROQUEL [Suspect]
     Indication: SLEEP DISORDER
     Dosage: 50 MG HS PO
     Route: 048
  5. DEXEDRINE [Concomitant]
  6. MARIJUANA [Concomitant]

REACTIONS (3)
  - AGGRESSION [None]
  - AMNESIA [None]
  - CONVULSION [None]
